FAERS Safety Report 7115072-3 (Version None)
Quarter: 2010Q4

REPORT INFORMATION
  Report Type: 
  Country: None (occurrence: None)
  Receive Date: 20101122
  Receipt Date: 20101109
  Transmission Date: 20110411
  Serious: Yes (Hospitalization)
  Sender: FDA-Public Use
  Company Number: JP-JNJFOC-20101007215

PATIENT
  Sex: Female

DRUGS (9)
  1. LEVOFLOXACIN [Suspect]
     Indication: CYSTITIS
     Route: 048
  2. LEVOFLOXACIN [Suspect]
     Indication: URINARY TRACT INFECTION
     Route: 048
  3. AMARYL [Suspect]
     Indication: DIABETES MELLITUS
     Route: 048
  4. BASEN [Suspect]
     Indication: DIABETES MELLITUS
     Route: 048
  5. PLAVIX [Concomitant]
     Indication: CEREBRAL INFARCTION
     Route: 048
  6. LASIX [Concomitant]
     Indication: CARDIAC FAILURE CHRONIC
     Route: 048
  7. LIPITOR [Concomitant]
     Indication: HYPERLIPIDAEMIA
     Route: 048
  8. DIOVAN [Concomitant]
     Indication: HYPERTENSION
     Route: 048
  9. VASOLAN [Concomitant]
     Indication: TACHYCARDIA
     Route: 048

REACTIONS (3)
  - BLOOD PRESSURE DIASTOLIC DECREASED [None]
  - BLOOD PRESSURE SYSTOLIC DECREASED [None]
  - HYPOGLYCAEMIA [None]
